FAERS Safety Report 25630469 (Version 1)
Quarter: 2025Q3

REPORT INFORMATION
  Report Type: Spontaneous
  Country: EU (occurrence: EU)
  Receive Date: 20250801
  Receipt Date: 20250801
  Transmission Date: 20251020
  Serious: Yes (Hospitalization, Other)
  Sender: AMGEN
  Company Number: EU-AMGEN-ITASP2025148478

PATIENT

DRUGS (1)
  1. ADALIMUMAB [Suspect]
     Active Substance: ADALIMUMAB
     Indication: Colitis ulcerative
     Route: 065

REACTIONS (13)
  - Colitis ulcerative [Unknown]
  - Embolism venous [Unknown]
  - Colorectal cancer [Unknown]
  - Clostridium difficile infection [Unknown]
  - Drug intolerance [Unknown]
  - Adverse event [Unknown]
  - Therapy non-responder [Unknown]
  - Herpes zoster reactivation [Unknown]
  - Lymphopenia [Unknown]
  - Dysplasia [Unknown]
  - Uterine leiomyoma [Unknown]
  - Pancreatic neoplasm [Unknown]
  - Blood creatine phosphokinase increased [Unknown]
